FAERS Safety Report 16792784 (Version 1)
Quarter: 2019Q3

REPORT INFORMATION
  Report Type: Spontaneous
  Country: TJ (occurrence: TJ)
  Receive Date: 20190910
  Receipt Date: 20190910
  Transmission Date: 20191005
  Serious: Yes (Other)
  Sender: FDA-Public Use
  Company Number: PHHY2019TJ206811

PATIENT
  Age: 4 Year
  Sex: Male
  Weight: 15 kg

DRUGS (15)
  1. CLOFAZIMINE [Suspect]
     Active Substance: CLOFAZIMINE
     Indication: TUBERCULOSIS OF INTRATHORACIC LYMPH NODES
     Dosage: 50 MG, QD
     Route: 065
     Dates: start: 20190706, end: 20190813
  2. MOXIFLOXACIN. [Suspect]
     Active Substance: MOXIFLOXACIN
     Indication: TUBERCULOSIS OF INTRATHORACIC LYMPH NODES
     Dosage: 150 MG, QD
     Route: 065
     Dates: start: 20190706, end: 20190813
  3. MOXIFLOXACIN. [Suspect]
     Active Substance: MOXIFLOXACIN
     Indication: TUBERCULOSIS
  4. DELAMANID [Suspect]
     Active Substance: DELAMANID
     Indication: TUBERCULOSIS
  5. CLOFAZIMINE [Suspect]
     Active Substance: CLOFAZIMINE
     Indication: EXTRAPULMONARY TUBERCULOSIS
  6. DELAMANID [Suspect]
     Active Substance: DELAMANID
     Indication: TUBERCULOSIS OF INTRATHORACIC LYMPH NODES
     Dosage: 50 MG, QD
     Route: 065
     Dates: start: 20190706, end: 20190813
  7. PYRAZINAMIDE. [Suspect]
     Active Substance: PYRAZINAMIDE
     Indication: TUBERCULOSIS OF INTRATHORACIC LYMPH NODES
     Dosage: 600 MG, QD
     Route: 065
     Dates: start: 20190718, end: 20190813
  8. CLOFAZIMINE [Suspect]
     Active Substance: CLOFAZIMINE
     Indication: TUBERCULOSIS
  9. LINEZOLID. [Suspect]
     Active Substance: LINEZOLID
     Indication: TUBERCULOSIS OF INTRATHORACIC LYMPH NODES
     Dosage: 300 MG, QD
     Route: 065
     Dates: start: 20190706, end: 20190813
  10. LINEZOLID. [Suspect]
     Active Substance: LINEZOLID
     Indication: EXTRAPULMONARY TUBERCULOSIS
  11. LINEZOLID. [Suspect]
     Active Substance: LINEZOLID
     Indication: TUBERCULOSIS
  12. DELAMANID [Suspect]
     Active Substance: DELAMANID
     Indication: EXTRAPULMONARY TUBERCULOSIS
     Dosage: 50 MG, QD
     Route: 065
     Dates: start: 201908, end: 201908
  13. PYRAZINAMIDE. [Suspect]
     Active Substance: PYRAZINAMIDE
     Indication: EXTRAPULMONARY TUBERCULOSIS
  14. PYRAZINAMIDE. [Suspect]
     Active Substance: PYRAZINAMIDE
     Indication: TUBERCULOSIS
  15. MOXIFLOXACIN. [Suspect]
     Active Substance: MOXIFLOXACIN
     Indication: EXTRAPULMONARY TUBERCULOSIS

REACTIONS (7)
  - Nausea [Unknown]
  - Product use issue [Unknown]
  - Phobia [Not Recovered/Not Resolved]
  - Product use in unapproved indication [Unknown]
  - Underdose [Unknown]
  - Hallucination, visual [Not Recovered/Not Resolved]
  - Hyperhidrosis [Not Recovered/Not Resolved]

NARRATIVE: CASE EVENT DATE: 20190811
